FAERS Safety Report 12938434 (Version 1)
Quarter: 2016Q4

REPORT INFORMATION
  Report Type: Spontaneous
  Country: US (occurrence: US)
  Receive Date: 20161114
  Receipt Date: 20161114
  Transmission Date: 20170207
  Serious: No
  Sender: FDA-Public Use
  Company Number: US-ACADIA PHARMACEUTICALS INC.-ACA-2016-000354

PATIENT
  Age: 59 Year
  Sex: Male
  Weight: 102.4 kg

DRUGS (5)
  1. FOLIC ACID. [Concomitant]
     Active Substance: FOLIC ACID
     Indication: PRODUCT USED FOR UNKNOWN INDICATION
     Dosage: UNK UNK, QD
     Route: 065
  2. URSODIOL. [Concomitant]
     Active Substance: URSODIOL
     Indication: BILE DUCT OBSTRUCTION
     Dosage: 3 IN THE MORNING AND 2 IN THE EVENING
     Route: 065
  3. CARBIDOPA/LEVODOPA [Concomitant]
     Active Substance: CARBIDOPA\LEVODOPA
     Indication: PARKINSON^S DISEASE
     Dosage: 4 TIMES A DAY
     Route: 065
  4. SULFASALAZINE. [Concomitant]
     Active Substance: SULFASALAZINE
     Indication: COLITIS ULCERATIVE
     Dosage: 3 IN THE MORNING AND 3 IN THE EVENING
     Route: 065
  5. NUPLAZID [Suspect]
     Active Substance: PIMAVANSERIN TARTRATE
     Indication: PRODUCT USED FOR UNKNOWN INDICATION
     Dosage: 34 MG, QD
     Route: 048
     Dates: start: 201607, end: 201608

REACTIONS (6)
  - Tremor [Unknown]
  - Respiratory rate increased [Unknown]
  - Gait disturbance [Unknown]
  - Panic attack [Unknown]
  - Aggression [Unknown]
  - Aphasia [Unknown]

NARRATIVE: CASE EVENT DATE: 201607
